FAERS Safety Report 12568979 (Version 1)
Quarter: 2016Q3

REPORT INFORMATION
  Report Type: Spontaneous
  Country: US (occurrence: US)
  Receive Date: 20160719
  Receipt Date: 20160719
  Transmission Date: 20161109
  Serious: No
  Sender: FDA-Public Use
  Company Number: PHEH2016US017756

PATIENT
  Sex: Female

DRUGS (4)
  1. ELAVIL [Concomitant]
     Active Substance: AMITRIPTYLINE HYDROCHLORIDE
     Indication: PRODUCT USED FOR UNKNOWN INDICATION
     Dosage: UNK
     Route: 065
     Dates: start: 2001
  2. TOPAMAX [Concomitant]
     Active Substance: TOPIRAMATE
     Indication: PRODUCT USED FOR UNKNOWN INDICATION
     Dosage: UNK
     Route: 065
     Dates: start: 2001
  3. TRILEPTAL [Suspect]
     Active Substance: OXCARBAZEPINE
     Indication: FACIAL PAIN
     Dosage: 300 MG, BID
     Route: 065
     Dates: start: 2013
  4. TRILEPTAL [Suspect]
     Active Substance: OXCARBAZEPINE
     Dosage: 150 MG, BID
     Route: 065

REACTIONS (2)
  - Pain [Unknown]
  - Fatigue [Unknown]
